FAERS Safety Report 22656128 (Version 1)
Quarter: 2023Q2

REPORT INFORMATION
  Report Type: Spontaneous
  Country: CN (occurrence: None)
  Receive Date: 20230629
  Receipt Date: 20230629
  Transmission Date: 20230722
  Serious: Yes (Death)
  Sender: FDA-Public Use
  Company Number: 2023A149123

PATIENT
  Age: 49 Year
  Sex: Female

DRUGS (1)
  1. LYNPARZA [Suspect]
     Active Substance: OLAPARIB
     Indication: Ovarian cancer
     Dosage: DAILY
     Route: 048

REACTIONS (4)
  - COVID-19 pneumonia [Fatal]
  - Lung disorder [Fatal]
  - Cardiac disorder [Fatal]
  - Cardiac arrest [Fatal]
